FAERS Safety Report 22225940 (Version 1)
Quarter: 2023Q2

REPORT INFORMATION
  Report Type: Other
  Country: AU (occurrence: AU)
  Receive Date: 20230419
  Receipt Date: 20230419
  Transmission Date: 20230722
  Serious: Yes (Other)
  Sender: FDA-Public Use
  Company Number: AU-CELLTRION INC.-2023AU007787

PATIENT

DRUGS (6)
  1. RITUXIMAB [Suspect]
     Active Substance: RITUXIMAB
     Indication: Product used for unknown indication
  2. AZATHIOPRINE [Suspect]
     Active Substance: AZATHIOPRINE
     Indication: Product used for unknown indication
  3. CYCLOSPORINE [Suspect]
     Active Substance: CYCLOSPORINE
     Indication: Product used for unknown indication
  4. ELTROMBOPAG [Suspect]
     Active Substance: ELTROMBOPAG
     Indication: Product used for unknown indication
  5. PREDNISOLONE [Suspect]
     Active Substance: PREDNISOLONE
     Indication: Product used for unknown indication
  6. VINCRISTINE [Suspect]
     Active Substance: VINCRISTINE
     Indication: Product used for unknown indication

REACTIONS (13)
  - Carotid artery stenosis [Unknown]
  - Cellulitis [Unknown]
  - Rectal haemorrhage [Unknown]
  - Bacteraemia [Unknown]
  - Cerebrovascular accident [Unknown]
  - Epistaxis [Unknown]
  - Marrow hyperplasia [Unknown]
  - Megakaryocytes increased [Unknown]
  - Platelet destruction increased [Unknown]
  - Thrombocytosis [Unknown]
  - Abscess [Unknown]
  - Drug ineffective [Unknown]
  - Product use in unapproved indication [Unknown]
